FAERS Safety Report 6843058-2 (Version None)
Quarter: 2010Q3

REPORT INFORMATION
  Report Type: 
  Country: None (occurrence: None)
  Receive Date: 20100712
  Receipt Date: 20100503
  Transmission Date: 20110219
  Serious: Yes (Other)
  Sender: FDA-Public Use
  Company Number: FKO201000151

PATIENT
  Age: 44 Year
  Sex: Male

DRUGS (3)
  1. BLEOMYCIN (MANUFACTURER UNKNOWN) (BLEOMYCIN) (BLEOMYCIN) [Suspect]
     Indication: EXTRAGONADAL PRIMARY SEMINOMA (PURE) STAGE I
     Dosage: ON DAYS 2, 9 AND 16 AND A TOTAL 360 UNIT
     Dates: end: 20061229
  2. ETOPOSIDE [Concomitant]
  3. CISPLATIN [Concomitant]

REACTIONS (5)
  - EOSINOPHILIC PNEUMONIA [None]
  - HYPOXIA [None]
  - NO THERAPEUTIC RESPONSE [None]
  - ORGANISING PNEUMONIA [None]
  - PULMONARY TOXICITY [None]
